FAERS Safety Report 8874598 (Version 2)
Quarter: 2012Q4

REPORT INFORMATION
  Report Type: 
  Country: JP (occurrence: JP)
  Receive Date: 20121030
  Receipt Date: 20121105
  Transmission Date: 20130627
  Serious: Yes (Life-Threatening)
  Sender: FDA-Public Use
  Company Number: JP-ASTRAZENECA-2012SE81302

PATIENT
  Age: 20944 Day
  Sex: Female
  Weight: 53 kg

DRUGS (4)
  1. FASLODEX [Suspect]
     Indication: BREAST CANCER
     Route: 030
     Dates: start: 20120217, end: 20120302
  2. NEUTROGIN [Concomitant]
     Dates: start: 20120302
  3. NEOPHAGEN [Concomitant]
     Dates: start: 20120228
  4. RECOMODULIN [Concomitant]
     Dates: start: 20120227

REACTIONS (1)
  - Haemorrhage subcutaneous [Recovered/Resolved]
